FAERS Safety Report 5818649-8 (Version None)
Quarter: 2008Q3

REPORT INFORMATION
  Report Type: 
  Country: None (occurrence: None)
  Receive Date: 20080717
  Receipt Date: 20080717
  Transmission Date: 20090109
  Serious: Yes (Life-Threatening)
  Sender: FDA-Public Use
  Company Number: None

PATIENT
  Age: 64 Year
  Sex: Male
  Weight: 90.7194 kg

DRUGS (1)
  1. LUNESTA [Suspect]
     Dosage: 1 TABLET BY MOUTH AT BEDTIME
     Route: 048

REACTIONS (1)
  - ROAD TRAFFIC ACCIDENT [None]
